FAERS Safety Report 6545651-3 (Version None)
Quarter: 2010Q1

REPORT INFORMATION
  Report Type: 
  Country: None (occurrence: None)
  Receive Date: 20100119
  Receipt Date: 20100104
  Transmission Date: 20100710
  Serious: Yes (Death, Hospitalization)
  Sender: FDA-Public Use
  Company Number: 2009AC000162

PATIENT
  Age: 72 Year
  Sex: Male

DRUGS (10)
  1. DIGOXIN [Suspect]
     Dosage: 0.25 MG;PO
     Route: 048
     Dates: start: 20080224
  2. FUROSEMIDE [Concomitant]
  3. ISOSORB DIN [Concomitant]
  4. CLINORIL [Concomitant]
  5. PREDNISONE [Concomitant]
  6. CARAFATE [Concomitant]
  7. SOLGANAL [Concomitant]
  8. PROCARDIA [Concomitant]
  9. LASIX [Concomitant]
  10. K-DUR [Concomitant]

REACTIONS (7)
  - CARDIAC ARREST [None]
  - ECONOMIC PROBLEM [None]
  - ELECTROMECHANICAL DISSOCIATION [None]
  - ILL-DEFINED DISORDER [None]
  - MULTIPLE INJURIES [None]
  - RESPIRATORY ARREST [None]
  - VENTRICULAR FIBRILLATION [None]
